FAERS Safety Report 24534293 (Version 1)
Quarter: 2024Q4

REPORT INFORMATION
  Report Type: Spontaneous
  Country: US (occurrence: US)
  Receive Date: 20241022
  Receipt Date: 20241022
  Transmission Date: 20250115
  Serious: No
  Sender: MYLAN
  Company Number: US-MYLANLABS-2024M1092718

PATIENT
  Sex: Female

DRUGS (1)
  1. TYRVAYA [Suspect]
     Active Substance: VARENICLINE TARTRATE
     Indication: Dry eye
     Dosage: 0.03 MILLIGRAM(ONCE)
     Route: 045

REACTIONS (6)
  - Visual impairment [Unknown]
  - Rhinorrhoea [Unknown]
  - Oral discomfort [Unknown]
  - Nasal discomfort [Unknown]
  - Throat irritation [Unknown]
  - Product label issue [Unknown]
